FAERS Safety Report 9718915 (Version 1)
Quarter: 2013Q4

REPORT INFORMATION
  Report Type: Spontaneous
  Country: FR (occurrence: None)
  Receive Date: 20131126
  Receipt Date: 20131126
  Transmission Date: 20140711
  Serious: Yes (Other)
  Sender: FDA-Public Use
  Company Number: ENTC2013-0441

PATIENT
  Age: 77 Year
  Sex: 0

DRUGS (12)
  1. STALEVO (LEVODOPA, CARBIDOPA, ENTACAPONE) [Suspect]
     Dosage: ORAL
     Route: 048
  2. MANTADIX [Suspect]
     Dosage: ORAL
     Route: 048
     Dates: start: 201309, end: 20131023
  3. DOMPERIDONE [Suspect]
     Dosage: ORAL
     Route: 048
  4. LISINOPRIL (LISINOPRIL) [Suspect]
  5. MODOPAR [Suspect]
     Dosage: ORAL
     Route: 048
  6. NEUPRO [Suspect]
     Dosage: ORAL
     Route: 048
  7. SERECOR [Suspect]
     Dosage: ORAL
     Route: 048
  8. PLAVIX [Suspect]
     Dosage: ORAL
     Route: 048
  9. MOPRAL (OMEPRAZOLE) [Suspect]
     Dosage: ORAL
     Route: 048
  10. GAVISCON [Suspect]
     Dosage: ORAL
     Route: 048
  11. GUTRON [Suspect]
  12. LEVOTHYROX (LEVOTHYROXINE SODIUM) INFUSION [Suspect]

REACTIONS (2)
  - Neutropenia [None]
  - Vomiting [None]
